FAERS Safety Report 16889163 (Version 7)
Quarter: 2020Q2

REPORT INFORMATION
  Report Type: Spontaneous
  Country: JP (occurrence: JP)
  Receive Date: 20191007
  Receipt Date: 20200609
  Transmission Date: 20200713
  Serious: Yes (Hospitalization, Other)
  Sender: FDA-Public Use
  Company Number: JP-AMGEN-JPNSP2019163100

PATIENT
  Age: 79 Year
  Sex: Female
  Weight: 45 kg

DRUGS (11)
  1. CRAVIT [Suspect]
     Active Substance: LEVOFLOXACIN
     Indication: INFECTION
     Dosage: 1 GRAM, QD
     Route: 065
     Dates: start: 20190927, end: 20190930
  2. ATORVASTATIN CALCIUM TRIHYDRATE [Concomitant]
     Active Substance: ATORVASTATIN CALCIUM
     Indication: DYSLIPIDAEMIA
     Dosage: UNK UNK, QD, 10
     Dates: start: 19980714, end: 20191003
  3. POLARAMINE [Concomitant]
     Active Substance: DEXCHLORPHENIRAMINE MALEATE
     Indication: HYPERSENSITIVITY
     Dosage: 5 MILLIGRAM, QD
     Dates: start: 20190930, end: 20191001
  4. HALOSPOR [Concomitant]
     Indication: INFECTION
     Dosage: UNK UNK, BID. 1.0
     Dates: start: 20190927, end: 20190929
  5. FESIN [SACCHARATED IRON OXIDE] [Concomitant]
     Active Substance: IRON SUCROSE
     Indication: IRON DEFICIENCY ANAEMIA
     Dosage: UNK
     Dates: start: 20191001, end: 20191014
  6. STRONGER NEO MINOPHAGEN C P [Concomitant]
     Indication: HYPERSENSITIVITY
     Dosage: 20 MILLIGRAM, QD
     Dates: start: 20190930, end: 20191001
  7. LOXONIN S [Concomitant]
     Active Substance: LOXOPROFEN SODIUM DIHYDRATE
     Indication: ANTIINFLAMMATORY THERAPY
     Dosage: UNK UNK, QD
     Dates: start: 20190905, end: 20191017
  8. ZOSYN [Concomitant]
     Active Substance: PIPERACILLIN SODIUM\TAZOBACTAM SODIUM
     Indication: INFECTION
     Dosage: 4.5 GRAM, QD
     Dates: start: 20190926, end: 20190926
  9. EVENITY [Suspect]
     Active Substance: ROMOSOZUMAB-AQQG
     Indication: OSTEOPOROSIS
     Dosage: 210 MILLIGRAM
     Route: 058
     Dates: start: 20190905
  10. PANSPORIN [Suspect]
     Active Substance: CEFOTIAM HYDROCHLORIDE
     Indication: PRODUCT USED FOR UNKNOWN INDICATION
     Dosage: UNK
     Route: 065
  11. EDIROL [Concomitant]
     Active Substance: ELDECALCITOL
     Indication: OSTEOPOROSIS
     Dosage: UNK UNK, QD, 0.75
     Dates: start: 20150328

REACTIONS (4)
  - Peripheral swelling [Recovered/Resolved]
  - Haemorrhage subcutaneous [Recovered/Resolved]
  - Injection site pain [Recovered/Resolved]
  - Dermatitis bullous [Recovered/Resolved]

NARRATIVE: CASE EVENT DATE: 20190905
